FAERS Safety Report 12931694 (Version 2)
Quarter: 2023Q2

REPORT INFORMATION
  Report Type: Other
  Country: US (occurrence: None)
  Receive Date: 20161110
  Receipt Date: 20230512
  Transmission Date: 20230722
  Serious: Yes (Other)
  Sender: FDA-Public Use
  Company Number: US-ROCHE-1849948

PATIENT
  Age: 63 Year
  Sex: Male

DRUGS (3)
  1. RITUXIMAB [Suspect]
     Active Substance: RITUXIMAB
     Indication: Chronic hepatitis C
     Dosage: 2 DOSES
     Route: 042
  2. RITUXIMAB [Suspect]
     Active Substance: RITUXIMAB
     Indication: Prophylaxis against transplant rejection
  3. BORTEZOMIB [Concomitant]
     Active Substance: BORTEZOMIB

REACTIONS (7)
  - Sepsis [Unknown]
  - Acute kidney injury [Unknown]
  - Glomerulonephritis membranoproliferative [Unknown]
  - Haematuria [Unknown]
  - Proteinuria [Unknown]
  - Purpura [Unknown]
  - Vasculitis [Unknown]
